FAERS Safety Report 21191164 (Version 1)
Quarter: 2022Q3

REPORT INFORMATION
  Report Type: Spontaneous
  Country: RU (occurrence: RU)
  Receive Date: 20220809
  Receipt Date: 20220809
  Transmission Date: 20221027
  Serious: Yes (Hospitalization, Other)
  Sender: FDA-Public Use
  Company Number: RU-FreseniusKabi-FK202210866

PATIENT
  Age: 10 Year
  Sex: Male

DRUGS (4)
  1. ETOPOSIDE [Suspect]
     Active Substance: ETOPOSIDE
     Indication: Acute lymphocytic leukaemia
     Dosage: ANTI-RELAPSE CHEMOTHERAPY WAS PERFORMED ACCORDING TO THE ALL REZ BFM 2002 PROTOCOL. AT A DOSE OF 6-2
  2. METHOTREXATE [Suspect]
     Active Substance: METHOTREXATE
     Indication: Acute lymphocytic leukaemia
     Dosage: ANTI-RELAPSE CHEMOTHERAPY WAS PERFORMED ACCORDING TO THE ALL REZ BFM 2002 PROTOCOL. AT A DOSE OF 6-2
  3. CYTARABINE [Suspect]
     Active Substance: CYTARABINE
     Indication: Acute lymphocytic leukaemia
     Dosage: ANTI-RELAPSE CHEMOTHERAPY WAS PERFORMED ACCORDING TO THE ALL REZ BFM 2002 PROTOCOL. AT A DOSE OF 6-2
  4. UNSPECIFIED INGREDIENT [Suspect]
     Active Substance: UNSPECIFIED INGREDIENT
     Indication: Acute lymphocytic leukaemia
     Dosage: ANTI-RELAPSE CHEMOTHERAPY WAS PERFORMED ACCORDING TO THE ALL REZ BFM 2002 PROTOCOL. AT A DOSE OF 6-2

REACTIONS (5)
  - Aplasia [Unknown]
  - Agranulocytosis [Unknown]
  - Lymphopenia [Unknown]
  - Neutropenic colitis [Recovered/Resolved]
  - Sialoadenitis [Recovered/Resolved]
